FAERS Safety Report 5763756-1 (Version None)
Quarter: 2008Q2

REPORT INFORMATION
  Report Type: 
  Country: None (occurrence: None)
  Receive Date: 20080606
  Receipt Date: 20080606
  Transmission Date: 20081010
  Serious: Yes (Other)
  Sender: FDA-Public Use
  Company Number: None

PATIENT

DRUGS (1)
  1. TIGECYCLINE [Suspect]
     Indication: ANTIBIOTIC THERAPY
     Dosage: 50MG IV Q12 H
     Route: 042
     Dates: start: 20070525, end: 20070527

REACTIONS (1)
  - THROMBOCYTOPENIA [None]
